FAERS Safety Report 18145813 (Version 3)
Quarter: 2020Q3

REPORT INFORMATION
  Report Type: Spontaneous
  Country: JP (occurrence: JP)
  Receive Date: 20200813
  Receipt Date: 20200821
  Transmission Date: 20201103
  Serious: Yes (Other)
  Sender: FDA-Public Use
  Company Number: JP-CELGENEUS-JPN-20200801920

PATIENT
  Age: 80 Year
  Sex: Female

DRUGS (4)
  1. IXAZOMIB [Concomitant]
     Active Substance: IXAZOMIB
     Indication: SECONDARY AMYLOIDOSIS
     Dosage: UNKNOWN
     Route: 065
     Dates: start: 201904, end: 201909
  2. DEXAMETHASONE. [Suspect]
     Active Substance: DEXAMETHASONE
     Indication: SECONDARY AMYLOIDOSIS
     Dosage: UNKNOWN
     Route: 048
     Dates: start: 201903
  3. ELOTUZUMAB. [Concomitant]
     Active Substance: ELOTUZUMAB
     Indication: SECONDARY AMYLOIDOSIS
     Dosage: UNKNOWN
     Route: 065
     Dates: start: 201909
  4. REVLIMID [Suspect]
     Active Substance: LENALIDOMIDE
     Indication: SECONDARY AMYLOIDOSIS
     Dosage: UNKNOWN
     Route: 048
     Dates: start: 201903, end: 201912

REACTIONS (3)
  - Cardiac arrest [Unknown]
  - Brain natriuretic peptide increased [Unknown]
  - Cardiac failure [Recovering/Resolving]

NARRATIVE: CASE EVENT DATE: 2019
